FAERS Safety Report 5623253-0 (Version None)
Quarter: 2008Q1

REPORT INFORMATION
  Report Type: 
  Country: None (occurrence: None)
  Receive Date: 20080212
  Receipt Date: 20080205
  Transmission Date: 20080703
  Serious: Yes (Death, Life-Threatening, Hospitalization)
  Sender: FDA-Public Use
  Company Number: ID-ASTRAZENECA-2008AP00774

PATIENT
  Age: 8553 Day
  Sex: Female

DRUGS (5)
  1. SEROQUEL [Suspect]
     Indication: PSYCHOTIC DISORDER
     Route: 048
     Dates: start: 20080120, end: 20080125
  2. SEROQUEL [Suspect]
     Route: 048
     Dates: start: 20080126, end: 20080130
  3. TRIHEXYPHENIDYL HCL [Concomitant]
     Indication: PARKINSON'S DISEASE
     Route: 048
     Dates: start: 20080126
  4. LORAZEPAM [Concomitant]
     Indication: SEDATIVE THERAPY
     Route: 048
  5. CLANEKSI [Concomitant]
     Indication: ANTIBIOTIC PROPHYLAXIS
     Route: 048
     Dates: start: 20080131

REACTIONS (4)
  - CONVULSION [None]
  - DEATH [None]
  - PYREXIA [None]
  - TREMOR [None]
